FAERS Safety Report 10236854 (Version 1)
Quarter: 2014Q2

REPORT INFORMATION
  Report Type: Spontaneous
  Country: DE (occurrence: DE)
  Receive Date: 20140613
  Receipt Date: 20140613
  Transmission Date: 20141212
  Serious: Yes (Hospitalization, Other)
  Sender: FDA-Public Use
  Company Number: DE-PFIZER INC-2014161885

PATIENT
  Age: 75 Year
  Sex: Male

DRUGS (12)
  1. PANTOZOL [Suspect]
     Dosage: 40 MG, DAILY
     Route: 048
  2. REMERGIL [Interacting]
     Dosage: 15-45 MG, QD
     Route: 048
     Dates: start: 20120530
  3. DIOVAN [Interacting]
     Dosage: 320 MG, DAILY
     Route: 048
  4. XIPAMIDE [Interacting]
     Dosage: 20 MG, DAILY
     Route: 048
  5. DEKRISTOL [Concomitant]
     Dosage: UNK
     Dates: start: 20120528, end: 20120604
  6. BISOPROLOL [Concomitant]
     Dosage: UNK
  7. SIMVASTATIN [Concomitant]
     Dosage: UNK
  8. DOXACOR [Concomitant]
     Dosage: UNK
  9. ALLOPURINOL [Concomitant]
     Dosage: UNK
  10. ASS [Concomitant]
     Dosage: UNK
  11. CALCILAC [Concomitant]
     Dosage: UNK
     Dates: end: 20120604
  12. MCP [Concomitant]
     Dosage: UNK
     Dates: start: 20120526, end: 20120604

REACTIONS (3)
  - Drug interaction [Unknown]
  - Hyponatraemia [Recovered/Resolved]
  - Hypokalaemia [Unknown]
